FAERS Safety Report 6691338-6 (Version None)
Quarter: 2010Q2

REPORT INFORMATION
  Report Type: 
  Country: None (occurrence: None)
  Receive Date: 20100416
  Receipt Date: 20100405
  Transmission Date: 20101027
  Serious: Yes (Hospitalization)
  Sender: FDA-Public Use
  Company Number: 2010040012

PATIENT
  Age: 28 Year
  Sex: Female

DRUGS (2)
  1. PENICILLAMINE [Suspect]
     Indication: HEPATO-LENTICULAR DEGENERATION
     Dosage: (1 GM,PER DAY);  (500 MG,PER DAY)
  2. FOLIC ACID [Concomitant]

REACTIONS (4)
  - ANTEPARTUM HAEMORRHAGE [None]
  - CAESAREAN SECTION [None]
  - PREGNANCY [None]
  - PREMATURE SEPARATION OF PLACENTA [None]
